FAERS Safety Report 5524556-0 (Version None)
Quarter: 2007Q4

REPORT INFORMATION
  Report Type: 
  Country: None (occurrence: None)
  Receive Date: 20071123
  Receipt Date: 20071114
  Transmission Date: 20080405
  Serious: No
  Sender: FDA-Public Use
  Company Number: JP-JNJFOC-20071005299

PATIENT
  Age: 66 Year
  Sex: Female

DRUGS (4)
  1. ITRIZOLE [Suspect]
     Route: 048
  2. ITRIZOLE [Suspect]
     Indication: NAIL TINEA
     Route: 048
  3. ASTAT [Concomitant]
     Indication: TINEA PEDIS
     Route: 061
  4. ASTAT [Concomitant]
     Indication: NAIL TINEA
     Route: 061

REACTIONS (4)
  - BLOOD PRESSURE INCREASED [None]
  - HEPATIC FUNCTION ABNORMAL [None]
  - OEDEMA [None]
  - PAIN [None]
